FAERS Safety Report 9225988 (Version 1)
Quarter: 2013Q2

REPORT INFORMATION
  Report Type: Spontaneous
  Country: US (occurrence: US)
  Receive Date: 20130411
  Receipt Date: 20130411
  Transmission Date: 20140414
  Serious: No
  Sender: FDA-Public Use
  Company Number: US-ASTELLAS-2012US004729

PATIENT
  Age: 46 Year
  Sex: Female

DRUGS (1)
  1. PROTOPIC [Suspect]
     Indication: BLEPHARITIS
     Dosage: UNK
     Route: 061
     Dates: start: 20120425, end: 20120425

REACTIONS (9)
  - Off label use [Unknown]
  - Eye irritation [Recovered/Resolved]
  - Visual acuity reduced [Not Recovered/Not Resolved]
  - Abnormal sensation in eye [Not Recovered/Not Resolved]
  - Eye disorder [Not Recovered/Not Resolved]
  - Eye pruritus [Recovered/Resolved]
  - Vision blurred [Recovering/Resolving]
  - Feeling abnormal [Unknown]
  - Asthenopia [Unknown]
